FAERS Safety Report 6793604-2 (Version None)
Quarter: 2010Q2

REPORT INFORMATION
  Report Type: 
  Country: None (occurrence: None)
  Receive Date: 20100624
  Receipt Date: 20081203
  Transmission Date: 20101027
  Serious: No
  Sender: FDA-Public Use
  Company Number: US-PFIZER INC-2008153035

PATIENT
  Sex: Male
  Weight: 70.295 kg

DRUGS (4)
  1. XALATAN [Suspect]
     Dosage: 2GTTS DAILY EVERY DAY TDD:2GTTS
     Dates: start: 20080101
  2. TPN [Concomitant]
     Dosage: UNK
  3. VITAMIN C [Concomitant]
     Dosage: UNK
  4. VITAMIN D [Concomitant]
     Dosage: UNK

REACTIONS (4)
  - BACK PAIN [None]
  - EYE PRURITUS [None]
  - FOREIGN BODY SENSATION IN EYES [None]
  - VISION BLURRED [None]
